FAERS Safety Report 19267885 (Version 1)
Quarter: 2021Q2

REPORT INFORMATION
  Report Type: Report from Study
  Country: CO (occurrence: CO)
  Receive Date: 20210518
  Receipt Date: 20210518
  Transmission Date: 20210717
  Serious: Yes (Other)
  Sender: FDA-Public Use
  Company Number: CO-JNJFOC-20210522791

PATIENT
  Age: 60 Year
  Sex: Female

DRUGS (1)
  1. SIMPONI [Suspect]
     Active Substance: GOLIMUMAB
     Indication: RHEUMATOID ARTHRITIS
     Dosage: GOLIMUMAB (100MG/ML) INJECTABLE SOLUTION 50 MG/0.5 ML
     Route: 058
     Dates: start: 20200801

REACTIONS (2)
  - Infective corneal ulcer [Unknown]
  - Eye infection [Unknown]

NARRATIVE: CASE EVENT DATE: 202104
